FAERS Safety Report 7802482-1 (Version None)
Quarter: 2011Q4

REPORT INFORMATION
  Report Type: 
  Country: None (occurrence: None)
  Receive Date: 20111007
  Receipt Date: 20110928
  Transmission Date: 20120403
  Serious: Yes (Death)
  Sender: FDA-Public Use
  Company Number: JP-GLAXOSMITHKLINE-B0734399A

PATIENT
  Age: 45 Year
  Sex: Male
  Weight: 80 kg

DRUGS (63)
  1. BISOLVON [Concomitant]
     Dosage: 4ML PER DAY
     Route: 042
     Dates: start: 20090729, end: 20090806
  2. VITAJECT [Concomitant]
     Dosage: 1IUAX PER DAY
     Route: 042
     Dates: start: 20090729, end: 20090806
  3. ELEMENMIC [Concomitant]
     Dosage: 1IUAX PER DAY
     Route: 042
     Dates: start: 20090809, end: 20090813
  4. MEROPENEM [Suspect]
     Indication: INFECTION
     Dosage: .5G PER DAY
     Route: 042
     Dates: start: 20090816, end: 20090820
  5. CEFAZOLIN [Suspect]
     Dosage: 1G PER DAY
     Route: 042
     Dates: start: 20090731, end: 20090731
  6. PIPERACILLIN SODIUM [Suspect]
     Indication: PRODUCT USED FOR UNKNOWN INDICATION
     Dosage: 2G PER DAY
     Route: 042
     Dates: start: 20090731, end: 20090731
  7. PIPERACILLIN SODIUM [Suspect]
     Dosage: 4G PER DAY
     Route: 042
     Dates: start: 20090801, end: 20090810
  8. CONIEL [Concomitant]
     Dosage: 4MG PER DAY
     Route: 048
     Dates: start: 20090813, end: 20090909
  9. NAFAMOSTAT MESILATE [Concomitant]
     Dosage: 300MG PER DAY
     Route: 042
     Dates: start: 20090725, end: 20090728
  10. HEPARIN SODIUM [Concomitant]
     Dosage: 5000IU PER DAY
     Route: 042
     Dates: start: 20090730, end: 20090730
  11. METHOXAMINE HYDROCHLORIDE [Concomitant]
     Dosage: 20MG PER DAY
     Route: 042
     Dates: start: 20090725, end: 20090725
  12. NICARDIPINE HCL [Concomitant]
     Dosage: 100MG PER DAY
     Route: 042
     Dates: start: 20090808, end: 20090813
  13. CALCIUM CARBONATE [Concomitant]
     Dosage: 10ML PER DAY
     Route: 042
     Dates: start: 20090725, end: 20090725
  14. MIDAZOLAM HCL [Concomitant]
     Dosage: 1ML PER DAY
     Route: 042
     Dates: start: 20090805, end: 20090805
  15. NOREPINEPHRINE BITARTRATE [Concomitant]
     Dosage: 31MG PER DAY
     Route: 042
     Dates: start: 20090725, end: 20090725
  16. VITAMEDIN [Concomitant]
     Dosage: 1IUAX PER DAY
     Route: 042
     Dates: start: 20090725, end: 20090728
  17. UNKNOWN [Concomitant]
     Dosage: 1000ML PER DAY
     Route: 042
     Dates: start: 20090726, end: 20090726
  18. PHENYTOIN SODIUM CAP [Suspect]
     Dosage: 125MG PER DAY
     Route: 042
     Dates: start: 20090820, end: 20090820
  19. BISOLVON [Concomitant]
     Dosage: 4ML PER DAY
     Route: 042
     Dates: start: 20090808, end: 20090824
  20. UNKNOWN [Concomitant]
     Dosage: 500ML PER DAY
     Route: 042
     Dates: start: 20090814, end: 20090817
  21. PROPOFOL [Concomitant]
     Dosage: 1IUAX PER DAY
     Route: 042
     Dates: start: 20090727, end: 20090727
  22. POTASSIUM CHLORIDE [Concomitant]
     Dosage: 40ML PER DAY
     Route: 042
     Dates: start: 20090811, end: 20090812
  23. ZANTAC [Suspect]
     Indication: PRODUCT USED FOR UNKNOWN INDICATION
     Dosage: 200MG PER DAY
     Route: 065
     Dates: start: 20090725, end: 20090813
  24. MEROPENEM [Suspect]
     Dosage: .5G PER DAY
     Route: 042
     Dates: start: 20090824, end: 20090824
  25. CEFAZOLIN [Suspect]
     Indication: PRODUCT USED FOR UNKNOWN INDICATION
     Dosage: 2G TWICE PER DAY
     Route: 042
     Dates: start: 20090725, end: 20090730
  26. MIDAZOLAM HCL [Concomitant]
     Dosage: 1ML PER DAY
     Route: 042
     Dates: start: 20090808, end: 20090811
  27. HEPARIN SODIUM [Concomitant]
     Dosage: 5000IU PER DAY
     Route: 042
     Dates: start: 20090810, end: 20090810
  28. MILLISROL (JAPAN) [Concomitant]
     Dosage: 10MG PER DAY
     Route: 042
     Dates: start: 20090806, end: 20090807
  29. FUROSEMIDE [Concomitant]
     Dosage: 10MG PER DAY
     Route: 042
     Dates: start: 20090726, end: 20090726
  30. FUROSEMIDE [Concomitant]
     Dosage: 20MG PER DAY
     Route: 042
     Dates: start: 20090728, end: 20090820
  31. MEROPENEM [Suspect]
     Dosage: 1G PER DAY
     Route: 042
     Dates: start: 20090821, end: 20090823
  32. PHENYTOIN SODIUM CAP [Suspect]
     Indication: GRAND MAL CONVULSION
     Dosage: 250MG PER DAY
     Route: 042
     Dates: start: 20090815, end: 20090819
  33. EPHEDRINE HYDROCHLORIDE [Concomitant]
     Dosage: 10ML PER DAY
     Route: 042
     Dates: start: 20090725, end: 20090725
  34. NEO-MINOPHAGEN-C [Concomitant]
     Dosage: 20ML PER DAY
     Route: 042
     Dates: start: 20090805, end: 20090817
  35. ELASPOL [Concomitant]
     Dosage: 400MG PER DAY
     Route: 042
     Dates: start: 20090725, end: 20090728
  36. MIDAZOLAM HCL [Concomitant]
     Dosage: 34ML PER DAY
     Route: 042
     Dates: start: 20090725, end: 20090101
  37. HICALIQ [Concomitant]
     Dosage: 500ML PER DAY
     Route: 042
     Dates: start: 20090729, end: 20090806
  38. VITAJECT [Concomitant]
     Dosage: 1IUAX PER DAY
     Route: 042
     Dates: start: 20090809, end: 20090814
  39. HEPARIN SODIUM [Concomitant]
     Dosage: 5000IU PER DAY
     Route: 042
     Dates: start: 20090808, end: 20090808
  40. BUPRENORPHINE HCL [Concomitant]
     Dosage: .2MG PER DAY
     Route: 042
     Dates: start: 20090803, end: 20090803
  41. MIDAZOLAM HCL [Concomitant]
     Dosage: 1ML PER DAY
     Route: 042
     Dates: start: 20090813, end: 20090813
  42. HEPARIN SODIUM [Concomitant]
     Dosage: 5000IU PER DAY
     Route: 042
     Dates: start: 20090805, end: 20090805
  43. FIRSTCIN [Suspect]
     Indication: PRODUCT USED FOR UNKNOWN INDICATION
     Dosage: 1G PER DAY
     Route: 042
     Dates: start: 20090811, end: 20090811
  44. URSO 250 [Concomitant]
     Dosage: 600MG PER DAY
     Route: 048
     Dates: start: 20090813, end: 20090828
  45. LAC B [Concomitant]
     Dosage: 3G PER DAY
     Route: 048
     Dates: start: 20090728, end: 20090915
  46. BIOFERMIN [Concomitant]
     Dosage: 3G PER DAY
     Route: 048
     Dates: start: 20090728, end: 20090915
  47. STADOL [Concomitant]
     Dosage: 1MG PER DAY
     Route: 042
     Dates: start: 20090729, end: 20090729
  48. DOBUTREX [Concomitant]
     Dosage: 800MG PER DAY
     Route: 042
     Dates: start: 20090725, end: 20090726
  49. PANTOL [Concomitant]
     Dosage: 200MG PER DAY
     Route: 042
     Dates: start: 20090729, end: 20090806
  50. PANTOL [Concomitant]
     Dosage: 200MG PER DAY
     Route: 042
     Dates: start: 20090808, end: 20090814
  51. HICALIQ [Concomitant]
     Dosage: 500ML PER DAY
     Route: 042
     Dates: start: 20090809, end: 20090813
  52. ELEMENMIC [Concomitant]
     Dosage: 1IUAX PER DAY
     Route: 042
     Dates: start: 20090729, end: 20090806
  53. FIRSTCIN [Suspect]
     Dosage: .5G PER DAY
     Route: 042
     Dates: start: 20090812, end: 20090814
  54. URSO 250 [Concomitant]
     Dosage: 600MG PER DAY
     Route: 048
     Dates: start: 20090804, end: 20090806
  55. LENDORMIN [Concomitant]
     Dosage: .25MG PER DAY
     Route: 048
     Dates: start: 20090812, end: 20090816
  56. DOPAMINE HCL [Concomitant]
     Dosage: 800MG PER DAY
     Route: 042
     Dates: start: 20090725, end: 20090726
  57. KETALAR [Concomitant]
     Dosage: 600MG PER DAY
     Route: 042
     Dates: start: 20090725, end: 20090726
  58. STADOL [Concomitant]
     Dosage: 1MG PER DAY
     Route: 042
     Dates: start: 20090804, end: 20090805
  59. NEOAMIYU [Concomitant]
     Dosage: 200ML PER DAY
     Route: 042
     Dates: start: 20090729, end: 20090806
  60. NEOAMIYU [Concomitant]
     Dosage: 200ML PER DAY
     Route: 042
     Dates: start: 20090809, end: 20090813
  61. HEPARIN SODIUM [Concomitant]
     Dosage: 5000IU PER DAY
     Route: 042
     Dates: start: 20090801, end: 20090801
  62. UNKNOWN [Concomitant]
     Dosage: 3000ML PER DAY
     Route: 042
     Dates: start: 20090725, end: 20090725
  63. NICARDIPINE HCL [Concomitant]
     Dosage: 100MG PER DAY
     Route: 042
     Dates: start: 20090804, end: 20090806

REACTIONS (22)
  - PYREXIA [None]
  - SKIN PLAQUE [None]
  - PNEUMONIA [None]
  - SKIN EROSION [None]
  - LIP EROSION [None]
  - SKIN LESION [None]
  - TOXIC EPIDERMAL NECROLYSIS [None]
  - ERYTHEMA MULTIFORME [None]
  - RETINAL HAEMORRHAGE [None]
  - SKIN EXFOLIATION [None]
  - PETECHIAE [None]
  - BLOOD PRESSURE DECREASED [None]
  - BLISTER [None]
  - EFFUSION [None]
  - RESPIRATORY DISORDER [None]
  - ERYTHEMA [None]
  - STAPHYLOCOCCAL INFECTION [None]
  - OCULAR HYPERAEMIA [None]
  - SCROTAL ULCER [None]
  - RASH [None]
  - MULTI-ORGAN FAILURE [None]
  - NIKOLSKY'S SIGN [None]
